FAERS Safety Report 8470524-9 (Version None)
Quarter: 2012Q2

REPORT INFORMATION
  Report Type: 
  Country: None (occurrence: None)
  Receive Date: 20120627
  Receipt Date: 20120402
  Transmission Date: 20120825
  Serious: No
  Sender: FDA-Public Use
  Company Number: US-MYLANLABS-2012S1003443

PATIENT
  Age: 67 Year
  Sex: Female
  Weight: 71.67 kg

DRUGS (6)
  1. PERFOROMIST [Suspect]
     Indication: ASTHMA
     Route: 055
     Dates: start: 20110201
  2. PERFOROMIST [Suspect]
     Indication: EMPHYSEMA
     Route: 055
     Dates: start: 20110201
  3. PERFOROMIST [Suspect]
     Indication: CHRONIC OBSTRUCTIVE PULMONARY DISEASE
     Route: 055
     Dates: start: 20110201
  4. PLAVIX [Concomitant]
  5. HYTRIN [Concomitant]
  6. LOSARTAN POTASSIUM [Concomitant]

REACTIONS (1)
  - NIGHT SWEATS [None]
